FAERS Safety Report 5921020-1 (Version None)
Quarter: 2008Q4

REPORT INFORMATION
  Report Type: 
  Country: None (occurrence: None)
  Receive Date: 20081016
  Receipt Date: 20081009
  Transmission Date: 20090506
  Serious: Yes (Life-Threatening, Hospitalization)
  Sender: FDA-Public Use
  Company Number: JP-ASTRAZENECA-2008AP07057

PATIENT
  Age: 48 Year
  Sex: Female

DRUGS (10)
  1. SEROQUEL [Suspect]
     Indication: SCHIZOPHRENIA
     Route: 048
     Dates: start: 20080830, end: 20080831
  2. SEROQUEL [Suspect]
     Indication: AFFECTIVE DISORDER
     Route: 048
     Dates: start: 20080830, end: 20080831
  3. SEROQUEL [Suspect]
     Route: 048
     Dates: start: 20071210
  4. SEROQUEL [Suspect]
     Route: 048
     Dates: start: 20071210
  5. LITHIUM [Suspect]
     Dates: start: 20080830, end: 20080831
  6. LITHIUM [Suspect]
     Route: 048
     Dates: start: 20071210
  7. RISPERDAL [Suspect]
     Route: 048
     Dates: start: 20080830, end: 20080831
  8. RISPERDAL [Suspect]
     Dates: start: 20071210
  9. DIAZEPAM [Suspect]
     Route: 048
     Dates: start: 20080830, end: 20080831
  10. DIAZEPAM [Suspect]
     Route: 048
     Dates: start: 20071210

REACTIONS (3)
  - ALTERED STATE OF CONSCIOUSNESS [None]
  - INTENTIONAL OVERDOSE [None]
  - VOMITING [None]
